FAERS Safety Report 12630176 (Version 1)
Quarter: 2016Q3

REPORT INFORMATION
  Report Type: Spontaneous
  Country: US (occurrence: US)
  Receive Date: 20160808
  Receipt Date: 20160808
  Transmission Date: 20161109
  Serious: Yes (Death)
  Sender: FDA-Public Use
  Company Number: US-DEPOMED, INC.-US-2016DEP006901

PATIENT

DRUGS (4)
  1. MS CONTIN [Concomitant]
     Active Substance: MORPHINE SULFATE
     Indication: PAIN
     Dosage: 30 MG, TID
     Route: 048
  2. LAZANDA [Suspect]
     Active Substance: FENTANYL CITRATE
     Indication: SPINAL PAIN
  3. LAZANDA [Suspect]
     Active Substance: FENTANYL CITRATE
     Indication: CHEST PAIN
     Dosage: 1-2 SPRAYS PER NOSTRIL, AS NEEDED, MAXIMUM DOSE OF 4 TIMES DAILY
     Route: 045
     Dates: start: 20140717
  4. PERCOCET                           /00446701/ [Concomitant]
     Active Substance: ACETAMINOPHEN\OXYCODONE HYDROCHLORIDE\OXYCODONE TEREPHTHALATE
     Indication: PAIN
     Dosage: 10 MG, TID
     Route: 048

REACTIONS (1)
  - Death [Fatal]

NARRATIVE: CASE EVENT DATE: 20140817
